FAERS Safety Report 7787004-6 (Version None)
Quarter: 2011Q3

REPORT INFORMATION
  Report Type: 
  Country: None (occurrence: None)
  Receive Date: 20110927
  Receipt Date: 20110912
  Transmission Date: 20111222
  Serious: Yes (Hospitalization)
  Sender: FDA-Public Use
  Company Number: DSJ-2011-20240

PATIENT
  Age: 53 Year
  Sex: Male

DRUGS (2)
  1. BENICAR [Suspect]
     Indication: HYPERTENSION
     Dosage: 20/5MG (1 IN 1 D),PER ORAL ; 40/10MG (2 IN 1 D),PER ORAL
     Route: 048
     Dates: start: 20110901
  2. BENICAR [Suspect]
     Indication: HYPERTENSION
     Dosage: 20/5MG (1 IN 1 D),PER ORAL ; 40/10MG (2 IN 1 D),PER ORAL
     Route: 048
     Dates: start: 20110501, end: 20110907

REACTIONS (3)
  - ARTERIOSCLEROSIS [None]
  - DRUG INEFFECTIVE [None]
  - INFARCTION [None]
